FAERS Safety Report 19193786 (Version 1)
Quarter: 2021Q2

REPORT INFORMATION
  Report Type: Spontaneous
  Country: CA (occurrence: CA)
  Receive Date: 20210428
  Receipt Date: 20210428
  Transmission Date: 20210717
  Serious: Yes (Hospitalization, Disabling)
  Sender: FDA-Public Use
  Company Number: None

PATIENT
  Age: 19 Year
  Sex: Female
  Weight: 58.5 kg

DRUGS (1)
  1. CHAMPIX (VARENICLINE) [Suspect]
     Active Substance: VARENICLINE TARTRATE
     Indication: EX-TOBACCO USER
     Dates: start: 20120720, end: 20120727

REACTIONS (18)
  - Emotional distress [None]
  - Mania [None]
  - Anxiety [None]
  - Ocular hyperaemia [None]
  - Eye irritation [None]
  - Dissociation [None]
  - Visual impairment [None]
  - Headache [None]
  - Thinking abnormal [None]
  - Stress [None]
  - Eating disorder [None]
  - Hypoaesthesia oral [None]
  - Hypoaesthesia [None]
  - Paraesthesia [None]
  - Photophobia [None]
  - Cognitive disorder [None]
  - Pupils unequal [None]
  - Night sweats [None]

NARRATIVE: CASE EVENT DATE: 20120727
